FAERS Safety Report 6942966-1 (Version None)
Quarter: 2010Q3

REPORT INFORMATION
  Report Type: 
  Country: None (occurrence: None)
  Receive Date: 20100824
  Receipt Date: 20100824
  Transmission Date: 20110219
  Serious: Yes (Disabling)
  Sender: FDA-Public Use
  Company Number: None

PATIENT
  Sex: Male
  Weight: 76.2043 kg

DRUGS (1)
  1. ATIVAN [Suspect]
     Indication: MENTAL DISORDER
     Dosage: 500 MG PO DAILY CONSTANT 2004 JAN
     Route: 048
     Dates: start: 20040101

REACTIONS (2)
  - ASTHENIA [None]
  - FEELING ABNORMAL [None]
